FAERS Safety Report 6491318-X (Version None)
Quarter: 2009Q4

REPORT INFORMATION
  Report Type: 
  Country: None (occurrence: None)
  Receive Date: 20091211
  Receipt Date: 20091203
  Transmission Date: 20100525
  Serious: Yes (Hospitalization, Other)
  Sender: FDA-Public Use
  Company Number: US-ELI_LILLY_AND_COMPANY-US200910000218

PATIENT
  Sex: Female
  Weight: 80.272 kg

DRUGS (9)
  1. BYETTA [Suspect]
     Indication: TYPE 2 DIABETES MELLITUS
     Dosage: 5 UG, 2/D
     Route: 058
     Dates: start: 20060215, end: 20090701
  2. BYETTA [Suspect]
     Dosage: 5 UG, 2/D
  3. GLIMEPIRIDE [Concomitant]
     Dosage: 4 MG, DAILY (1/D)
  4. METFORMIN HCL [Concomitant]
     Dosage: 1000 MG, 2/D
  5. ALTACE [Concomitant]
     Dosage: 5 MG, DAILY (1/D)
  6. ASPIRIN [Concomitant]
     Dosage: 81 MG, DAILY (1/D)
  7. LIPITOR [Concomitant]
     Dosage: 20 MG, DAILY (1/D)
  8. TOPROL-XL [Concomitant]
     Dosage: 50 MG, DAILY (1/D)
  9. CYMBALTA [Concomitant]
     Dosage: 60 MG, DAILY (1/D)

REACTIONS (1)
  - AORTIC ANEURYSM [None]
